FAERS Safety Report 20368378 (Version 1)
Quarter: 2022Q1

REPORT INFORMATION
  Report Type: Spontaneous
  Country: FR (occurrence: FR)
  Receive Date: 20220124
  Receipt Date: 20220124
  Transmission Date: 20220423
  Serious: Yes (Hospitalization)
  Sender: FDA-Public Use
  Company Number: None

PATIENT
  Age: 56 Year
  Sex: Female

DRUGS (3)
  1. QUETIAPINE [Suspect]
     Active Substance: QUETIAPINE
     Dosage: NP
     Route: 048
     Dates: start: 20211031, end: 20211031
  2. OLANZAPINE [Suspect]
     Active Substance: OLANZAPINE
     Dosage: NP
     Route: 048
     Dates: start: 20211031, end: 20211031
  3. ALPRAZOLAM [Suspect]
     Active Substance: ALPRAZOLAM
     Indication: Intentional overdose
     Dosage: NP
     Route: 048
     Dates: start: 20211031, end: 20211031

REACTIONS (3)
  - Coma [Recovered/Resolved]
  - Poisoning deliberate [Unknown]
  - Tachycardia [Recovered/Resolved]

NARRATIVE: CASE EVENT DATE: 20211031
